FAERS Safety Report 7578689-8 (Version None)
Quarter: 2011Q2

REPORT INFORMATION
  Report Type: 
  Country: None (occurrence: None)
  Receive Date: 20110628
  Receipt Date: 20110623
  Transmission Date: 20111010
  Serious: Yes (Hospitalization)
  Sender: FDA-Public Use
  Company Number: DE-ABBOTT-11P-062-0834345-00

PATIENT
  Sex: Male
  Weight: 90 kg

DRUGS (1)
  1. ZEMPLAR [Suspect]
     Indication: HYPERPARATHYROIDISM SECONDARY
     Dosage: 15 ?G PER WEEK
     Route: 042
     Dates: start: 20100623

REACTIONS (1)
  - NEPHROLITHIASIS [None]
